FAERS Safety Report 16791931 (Version 2)
Quarter: 2019Q4

REPORT INFORMATION
  Report Type: Report from Study
  Country: US (occurrence: US)
  Receive Date: 20190910
  Receipt Date: 20191002
  Transmission Date: 20200122
  Serious: Yes (Hospitalization)
  Sender: FDA-Public Use
  Company Number: US-PFIZER INC-2019378460

PATIENT
  Age: 21 Year
  Sex: Male
  Weight: 125.2 kg

DRUGS (8)
  1. DEXAMETHASONE. [Suspect]
     Active Substance: DEXAMETHASONE
     Indication: LEUKAEMIA
     Dosage: 6 MG, BID AT SPECIFIED TIME POINTS
     Route: 048
     Dates: start: 20190705
  2. DOXORUBICIN HCL [Suspect]
     Active Substance: DOXORUBICIN HYDROCHLORIDE
     Indication: LEUKAEMIA
     Dosage: 64 MG, AT SPECIFIED TIME POINTS
     Route: 042
     Dates: start: 20190705
  3. TRIMETOPRIM SULFAMETOXAZOL [Concomitant]
     Active Substance: SULFAMETHOXAZOLE\TRIMETHOPRIM
     Dosage: UNK
     Dates: start: 20190718
  4. METHOTREXATE SODIUM. [Suspect]
     Active Substance: METHOTREXATE SODIUM
     Indication: LEUKAEMIA
     Dosage: 15 MG, AT SPECIFIED TIME POINTS
     Route: 037
     Dates: start: 20190705
  5. INCB018424 [Suspect]
     Active Substance: RUXOLITINIB
     Indication: LEUKAEMIA
     Dosage: 100 MG, QD AT SPECIFIED TIME POINTS
     Route: 048
     Dates: start: 20190705, end: 20190801
  6. INCB018424 [Suspect]
     Active Substance: RUXOLITINIB
     Dosage: 100 MG, QD
     Route: 048
     Dates: start: 20190808
  7. VINCRISTINE SULFATE. [Suspect]
     Active Substance: VINCRISTINE SULFATE
     Indication: LEUKAEMIA
     Dosage: 2 MG, AT SPECIFIED TIME POINTS
     Route: 042
     Dates: start: 20190705
  8. PEGASPARGASE [Suspect]
     Active Substance: PEGASPARGASE
     Indication: LEUKAEMIA
     Dosage: 6300 IU, AT SPEICIFED TIME POINTS
     Route: 042
     Dates: start: 20190708

REACTIONS (6)
  - Platelet count decreased [Recovered/Resolved]
  - Anaemia [Recovered/Resolved]
  - Stomatitis [Recovered/Resolved]
  - Sepsis [Recovered/Resolved]
  - White blood cell count decreased [Recovered/Resolved]
  - Dehydration [Recovered/Resolved]

NARRATIVE: CASE EVENT DATE: 20190725
